FAERS Safety Report 9246896 (Version 1)
Quarter: 2013Q2

REPORT INFORMATION
  Report Type: Spontaneous
  Country: FR (occurrence: FR)
  Receive Date: 20130422
  Receipt Date: 20130422
  Transmission Date: 20140414
  Serious: Yes (Hospitalization)
  Sender: FDA-Public Use
  Company Number: FR-GLAXOSMITHKLINE-B0883792A

PATIENT
  Age: 61 Year
  Sex: Female

DRUGS (6)
  1. DEROXAT [Suspect]
     Indication: DEPRESSION
     Dosage: .5UNIT PER DAY
     Route: 048
     Dates: start: 20120422, end: 20120425
  2. SEROPLEX [Suspect]
     Indication: DEPRESSION
     Route: 048
     Dates: start: 20120415, end: 20120421
  3. NISISCO [Suspect]
     Indication: HYPERTENSION
     Dosage: 1UNIT PER DAY
     Route: 048
     Dates: end: 20120425
  4. SERESTA [Concomitant]
     Route: 048
     Dates: start: 201204
  5. ZOCOR [Concomitant]
     Dosage: 20MG PER DAY
     Route: 048
  6. STILNOX [Concomitant]
     Dosage: 10MG PER DAY
     Route: 048
     Dates: start: 201204

REACTIONS (2)
  - Hyponatraemia [Recovered/Resolved]
  - Balance disorder [Recovered/Resolved]
